FAERS Safety Report 23062317 (Version 1)
Quarter: 2023Q4

REPORT INFORMATION
  Report Type: Report from Study
  Country: CR (occurrence: None)
  Receive Date: 20231013
  Receipt Date: 20231013
  Transmission Date: 20240109
  Serious: Yes (Other)
  Sender: FDA-Public Use
  Company Number: 2023A227630

PATIENT
  Sex: Female

DRUGS (4)
  1. DAPAGLIFLOZIN [Suspect]
     Active Substance: DAPAGLIFLOZIN
     Route: 048
     Dates: start: 2021
  2. XIGDUO XR [Suspect]
     Active Substance: DAPAGLIFLOZIN PROPANEDIOL\METFORMIN HYDROCHLORIDE
     Indication: Diabetes mellitus
     Route: 048
     Dates: start: 20221117
  3. CRESTOR [Suspect]
     Active Substance: ROSUVASTATIN CALCIUM
     Dosage: 5MG/1000MG40.0MG UNKNOWN
     Route: 048
  4. CRESTOR [Suspect]
     Active Substance: ROSUVASTATIN CALCIUM
     Dosage: 10MG/1000MG UNKNOWN
     Route: 048

REACTIONS (4)
  - Thrombosis [Recovered/Resolved]
  - Blindness [Unknown]
  - Blood pressure increased [Unknown]
  - Diabetes mellitus [Unknown]
